FAERS Safety Report 8049950-8 (Version None)
Quarter: 2011Q4

REPORT INFORMATION
  Report Type: 
  Country: None (occurrence: None)
  Receive Date: 20111212
  Receipt Date: 20110916
  Transmission Date: 20120403
  Serious: Yes (Hospitalization)
  Sender: FDA-Public Use
  Company Number: PHEH2011US04565

PATIENT
  Age: 42 Year
  Sex: Female
  Weight: 84 kg

DRUGS (14)
  1. INTERFERON BETA-1B [Suspect]
     Indication: MULTIPLE SCLEROSIS
     Dosage: 0.3 MG, QOD ON MONDAY, WEDNESDAY AND FRIDAY OF A WEEK, SUBCUTANEOUS
     Route: 058
     Dates: start: 20100416, end: 20100716
  2. SINGULAIR [Concomitant]
  3. SOLU-MEDROL [Concomitant]
  4. AMPHETAMINE SALTS (AMFETAMINE SULFATE) [Concomitant]
  5. CYTOXAN (CYCLOPHOSPHAMINE) [Concomitant]
  6. ALBUTEROL [Concomitant]
  7. OXYBUTYNIN [Concomitant]
  8. IBUPROFEN (IBUPROFEN) [Concomitant]
  9. NEXIUM (ESOMPRAZOLE MAGNESIUM) [Concomitant]
  10. VITAMIN D [Concomitant]
  11. ADVAIR DISKUS (FLUTICASONE PROPIONATE, SALMETEROL XINAFOATE) [Concomitant]
  12. EFFEXOR [Concomitant]
  13. EPIPEN [Concomitant]
  14. ATENOLOL [Concomitant]

REACTIONS (1)
  - PAIN [None]
